FAERS Safety Report 5877257-3 (Version None)
Quarter: 2008Q3

REPORT INFORMATION
  Report Type: 
  Country: None (occurrence: None)
  Receive Date: 20080828
  Receipt Date: 20080819
  Transmission Date: 20090109
  Serious: Yes (Hospitalization, Other)
  Sender: FDA-Public Use
  Company Number: AEUSA200800180

PATIENT
  Age: 88 Year
  Sex: Female
  Weight: 55.3388 kg

DRUGS (2)
  1. GAMASTAN [Suspect]
     Indication: HEPATITIS
     Dosage: 1.1 ML;1X;IM
     Route: 030
     Dates: start: 20080709, end: 20080709
  2. GAMASTAN [Suspect]
     Indication: PROPHYLAXIS
     Dosage: 1.1 ML;1X;IM
     Route: 030
     Dates: start: 20080709, end: 20080709

REACTIONS (16)
  - BLOOD CREATINE PHOSPHOKINASE INCREASED [None]
  - BLOOD CREATININE INCREASED [None]
  - CHILLS [None]
  - COUGH [None]
  - DECREASED APPETITE [None]
  - DYSPNOEA [None]
  - HAEMATOCRIT DECREASED [None]
  - HAEMOGLOBIN DECREASED [None]
  - LETHARGY [None]
  - LYMPHOCYTE PERCENTAGE DECREASED [None]
  - MYOGLOBIN BLOOD INCREASED [None]
  - NEUTROPHIL PERCENTAGE INCREASED [None]
  - OXYGEN SATURATION DECREASED [None]
  - PNEUMONIA [None]
  - RED BLOOD CELL COUNT DECREASED [None]
  - WHITE BLOOD CELL COUNT INCREASED [None]
